FAERS Safety Report 7554359 (Version 3)
Quarter: 2013Q1

REPORT INFORMATION
  Report Type: Spontaneous
  Country: CA (occurrence: CA)
  Receive Date: 20100826
  Receipt Date: 20130212
  Transmission Date: 20140127
  Serious: Yes (Hospitalization)
  Sender: FDA-Public Use
  Company Number: CA-JNJFOC-20100805453

PATIENT
  Age: 36 Year
  Sex: Male
  Weight: 78.02 kg

DRUGS (9)
  1. RISPERDAL CONSTA [Suspect]
     Indication: SCHIZOPHRENIA
     Route: 030
     Dates: start: 20100603, end: 20100622
  2. RISPERDAL CONSTA [Suspect]
     Indication: SCHIZOPHRENIA
     Route: 030
     Dates: start: 20100701, end: 20100810
  3. RISPERDAL CONSTA [Suspect]
     Indication: SCHIZOPHRENIA
     Route: 030
     Dates: start: 20091005, end: 20091022
  4. RISPERIDONE [Suspect]
     Indication: SCHIZOPHRENIA
     Route: 065
     Dates: start: 20100603
  5. RISPERIDONE [Suspect]
     Indication: SCHIZOPHRENIA
     Route: 065
     Dates: start: 20100701, end: 20100810
  6. LORAZEPAM [Concomitant]
     Indication: PRODUCT USED FOR UNKNOWN INDICATION
     Route: 065
     Dates: start: 20100603
  7. COGENTIN [Concomitant]
     Indication: PRODUCT USED FOR UNKNOWN INDICATION
     Route: 065
     Dates: start: 20100723
  8. RIVOTRIL [Concomitant]
     Indication: ANXIETY
     Route: 065
  9. ABILIFY [Concomitant]
     Indication: PRODUCT USED FOR UNKNOWN INDICATION
     Route: 065
     Dates: start: 20100712, end: 20100803

REACTIONS (8)
  - Hospitalisation [Recovered/Resolved]
  - Dyspnoea [Unknown]
  - Neuroleptic malignant syndrome [Unknown]
  - Psychotic disorder [Unknown]
  - Blood creatine phosphokinase increased [Unknown]
  - Anxiety [Unknown]
  - Hypertension [Unknown]
  - Muscle rigidity [Unknown]
